FAERS Safety Report 16396430 (Version 2)
Quarter: 2019Q3

REPORT INFORMATION
  Report Type: Spontaneous
  Country: PL (occurrence: PL)
  Receive Date: 20190605
  Receipt Date: 20190927
  Transmission Date: 20191004
  Serious: Yes (Death, Disabling, Other)
  Sender: FDA-Public Use
  Company Number: PL-BAXTER-2019BAX010801

PATIENT
  Age: 64 Year
  Sex: Female

DRUGS (10)
  1. FUROSEMIDE NORAMEDA 10 MG/ML ROZTWOR DO WSTRZYKIWAN/ DO INFUZJI [Suspect]
     Active Substance: FUROSEMIDE
     Indication: CERVIX CARCINOMA
     Dosage: QD, PERIODICALLY, DOSE WAS INCREASED TO 60 MG/D
     Route: 065
  2. MORPHINE [Suspect]
     Active Substance: MORPHINE
     Indication: NEURALGIA
     Dosage: 240 MG, QD
     Route: 048
  3. AMITRIPTYLINE [Suspect]
     Active Substance: AMITRIPTYLINE
     Indication: NEURALGIA
     Dosage: 150 MG, QD (3 X 50 G)
     Route: 065
  4. POTASSIUM [Suspect]
     Active Substance: POTASSIUM
     Indication: CERVIX CARCINOMA
     Route: 065
  5. FLUCONAZOLE. [Suspect]
     Active Substance: FLUCONAZOLE
     Indication: FUNGAL INFECTION
     Dosage: 200 MG, QD
     Route: 048
  6. LOW MOLECULAR WEIGHT HEPARIN [Suspect]
     Active Substance: UNSPECIFIED INGREDIENT
     Indication: CERVIX CARCINOMA
     Dosage: UNK (AT A PROPHYLACTIC DOSE)
     Route: 065
  7. MORPHINE [Suspect]
     Active Substance: MORPHINE
     Indication: PAIN
     Route: 065
  8. OLANZAPINE. [Suspect]
     Active Substance: OLANZAPINE
     Indication: INITIAL INSOMNIA
     Dosage: 10 MG (TAKEN BEFORE GOING TO SLEEP)
     Route: 065
  9. OLANZAPINE. [Suspect]
     Active Substance: OLANZAPINE
     Indication: NAUSEA
     Route: 065
  10. FUROSEMIDE NORAMEDA 10 MG/ML ROZTWOR DO WSTRZYKIWAN/ DO INFUZJI [Suspect]
     Active Substance: FUROSEMIDE
     Route: 065

REACTIONS (15)
  - Cardiac arrest [Fatal]
  - Somnolence [Not Recovered/Not Resolved]
  - Dyspnoea [Fatal]
  - Haemoptysis [Fatal]
  - Nausea [Recovered/Resolved]
  - Cardio-respiratory arrest [Fatal]
  - Somnolence [Fatal]
  - Confusional state [Fatal]
  - Swelling [Fatal]
  - Cyanosis [Fatal]
  - Cough [Fatal]
  - Drug interaction [Fatal]
  - Oedema peripheral [Fatal]
  - Pulmonary embolism [Fatal]
  - Chest pain [Fatal]
